FAERS Safety Report 9045427 (Version 1)
Quarter: 2013Q1

REPORT INFORMATION
  Report Type: Spontaneous
  Country: PR (occurrence: PR)
  Receive Date: 20130131
  Receipt Date: 20130131
  Transmission Date: 20140127
  Serious: No
  Sender: FDA-Public Use
  Company Number: PR-ABBOTT-12P-131-1002193-00

PATIENT
  Age: 71 None
  Sex: Female
  Weight: 58.11 kg

DRUGS (4)
  1. HUMIRA [Suspect]
     Indication: PSORIASIS
     Route: 058
  2. UNKNOWN DRUG [Concomitant]
     Indication: DEMENTIA ALZHEIMER^S TYPE
  3. RESTORIL [Concomitant]
     Indication: SLEEP DISORDER THERAPY
  4. UNKNOWN DRUG [Concomitant]
     Indication: DEPRESSION

REACTIONS (5)
  - Dementia Alzheimer^s type [Not Recovered/Not Resolved]
  - Device malfunction [Unknown]
  - Memory impairment [Unknown]
  - Device malfunction [Unknown]
  - Incorrect dose administered [Unknown]
